FAERS Safety Report 20095979 (Version 1)
Quarter: 2021Q4

REPORT INFORMATION
  Report Type: Spontaneous
  Country: US (occurrence: None)
  Receive Date: 20211119
  Receipt Date: 20211119
  Transmission Date: 20220303
  Serious: No
  Sender: FDA-Public Use
  Company Number: None

PATIENT
  Sex: Female

DRUGS (1)
  1. DIMETHYL FUMARATE [Suspect]
     Active Substance: DIMETHYL FUMARATE
     Indication: Multiple sclerosis
     Dosage: FREQUENCY : TWICE A DAY;?
     Route: 048
     Dates: start: 202010

REACTIONS (7)
  - Multiple sclerosis [None]
  - Visual impairment [None]
  - Hypoacusis [None]
  - Speech disorder [None]
  - Memory impairment [None]
  - Depressed level of consciousness [None]
  - Drug ineffective [None]
